FAERS Safety Report 5623053-1 (Version None)
Quarter: 2008Q1

REPORT INFORMATION
  Report Type: 
  Country: None (occurrence: None)
  Receive Date: 20080212
  Receipt Date: 20080131
  Transmission Date: 20080703
  Serious: Yes (Death, Other)
  Sender: FDA-Public Use
  Company Number: JP-AVENTIS-200810224JP

PATIENT
  Age: 62 Year
  Sex: Male

DRUGS (8)
  1. LASIX [Suspect]
     Route: 048
     Dates: start: 20071226, end: 20080118
  2. INDOMETHACIN [Concomitant]
  3. ROPION [Concomitant]
  4. ATARAX [Concomitant]
  5. UNASYN ORAL                        /00903601/ [Concomitant]
  6. BISOLVON                           /00004702/ [Concomitant]
  7. ADONA                              /00056903/ [Concomitant]
  8. TRANSAMIN [Concomitant]

REACTIONS (2)
  - RESPIRATORY DISORDER [None]
  - THROMBOCYTOPENIA [None]
